FAERS Safety Report 4426965-X (Version None)
Quarter: 2004Q3

REPORT INFORMATION
  Report Type: 
  Country: None (occurrence: None)
  Receive Date: 20040726
  Receipt Date: 20040420
  Transmission Date: 20050211
  Serious: No
  Sender: FDA-Public Use
  Company Number: USA040465496

PATIENT
  Age: 75 Year
  Sex: Female

DRUGS (1)
  1. FORTEO [Suspect]
     Dates: start: 20040624

REACTIONS (5)
  - ASTHENIA [None]
  - CONSTIPATION [None]
  - MICTURITION URGENCY [None]
  - MUSCLE CRAMP [None]
  - POLLAKIURIA [None]
